FAERS Safety Report 18516643 (Version 1)
Quarter: 2020Q4

REPORT INFORMATION
  Report Type: Spontaneous
  Country: US (occurrence: DE)
  Receive Date: 20201118
  Receipt Date: 20201118
  Transmission Date: 20210114
  Serious: Yes (Death, Life-Threatening, Hospitalization, Other)
  Sender: FDA-Public Use
  Company Number: US-AUROBINDO-AUR-APL-2020-056933

PATIENT
  Sex: Female
  Weight: 71 kg

DRUGS (51)
  1. AMLODIPINE [Suspect]
     Active Substance: AMLODIPINE BESYLATE
     Dosage: 5 MILLIGRAM, TWO TIMES A DAY
     Route: 048
     Dates: start: 20180523
  2. L-THYROX HEXAL [Suspect]
     Active Substance: LEVOTHYROXINE SODIUM
     Dosage: 100 MICROGRAM, ONCE A DAY
     Route: 048
     Dates: start: 20180524
  3. DIOVAN [Suspect]
     Active Substance: VALSARTAN
     Dosage: 80 MILLIGRAM
     Route: 065
     Dates: start: 2011
  4. DIOVAN [Suspect]
     Active Substance: VALSARTAN
     Dosage: 160 MILLIGRAM, DAILY
     Route: 065
     Dates: start: 201310
  5. FENTANYL CT [Concomitant]
     Indication: PRODUCT USED FOR UNKNOWN INDICATION
     Dosage: 12 MICROGRAM/HOUR
     Route: 065
     Dates: start: 201903
  6. TAVOR [Concomitant]
     Indication: PRODUCT USED FOR UNKNOWN INDICATION
     Dosage: 1 UNK
     Route: 065
     Dates: start: 201902
  7. FUROSEMIDE. [Concomitant]
     Active Substance: FUROSEMIDE
     Dosage: 2 DOSAGE FORM, DAILY
     Route: 065
  8. AMLODIPINE [Suspect]
     Active Substance: AMLODIPINE BESYLATE
     Indication: PRODUCT USED FOR UNKNOWN INDICATION
     Dosage: 5 UNK, BID, ONCE IN THE MORNING, ONCE IN THE EVENING
     Route: 065
     Dates: start: 200803
  9. VALSARTAN FILM-COATED TABLET [Suspect]
     Active Substance: VALSARTAN
     Indication: PRODUCT USED FOR UNKNOWN INDICATION
     Dosage: 320 MILLIGRAM, ONCE A DAY
     Route: 065
     Dates: start: 2005
  10. VALSARTAN FILM-COATED TABLET [Suspect]
     Active Substance: VALSARTAN
     Dosage: 160 MILLIGRAM, ONCE A DAY
     Route: 065
     Dates: start: 201202
  11. VALSARTAN FILM-COATED TABLET [Suspect]
     Active Substance: VALSARTAN
     Dosage: 160 MILLIGRAM, TWO TIMES A DAY
     Route: 065
     Dates: start: 201005
  12. VALSARTAN FILM-COATED TABLET [Suspect]
     Active Substance: VALSARTAN
     Dosage: 160 MILLIGRAM
     Route: 065
     Dates: start: 201702
  13. VALSARTAN HEXAL [Suspect]
     Active Substance: VALSARTAN
     Indication: PRODUCT USED FOR UNKNOWN INDICATION
     Dosage: UNK
     Route: 065
     Dates: start: 2013
  14. VALSARTAN 1A PHARMA [Suspect]
     Active Substance: VALSARTAN
     Indication: PRODUCT USED FOR UNKNOWN INDICATION
     Dosage: 160 MILLIGRAM, TWO TIMES A DAY
     Route: 065
     Dates: start: 200502
  15. VALSARTAN DURA [Concomitant]
     Active Substance: VALSARTAN
     Indication: PRODUCT USED FOR UNKNOWN INDICATION
     Dosage: 160 MILLIGRAM
     Route: 065
     Dates: start: 201702
  16. MACROGOL ABZ BALANCE [Concomitant]
     Active Substance: POLYETHYLENE GLYCOL 3350\POTASSIUM CHLORIDE\SODIUM BICARBONATE\SODIUM CHLORIDE
     Indication: PRODUCT USED FOR UNKNOWN INDICATION
     Dosage: UNK
     Route: 065
     Dates: start: 201902
  17. PANTOPRAZOLE [Concomitant]
     Active Substance: PANTOPRAZOLE
     Indication: PRODUCT USED FOR UNKNOWN INDICATION
     Dosage: 40 MILLIGRAM
     Route: 065
     Dates: start: 201901
  18. IBUPROFEN. [Concomitant]
     Active Substance: IBUPROFEN
     Indication: PRODUCT USED FOR UNKNOWN INDICATION
     Dosage: 400 MILLIGRAM, TWO TIMES A DAY
     Route: 065
  19. FUROSEMIDE. [Concomitant]
     Active Substance: FUROSEMIDE
     Indication: PRODUCT USED FOR UNKNOWN INDICATION
     Dosage: 40 MILLIGRAM, DAILY
     Route: 065
     Dates: start: 201903
  20. DIGIMERCK MINOR [Concomitant]
     Active Substance: DIGITOXIN
     Indication: PRODUCT USED FOR UNKNOWN INDICATION
     Dosage: 0.07 UNK
     Route: 065
     Dates: start: 201901
  21. ECURAL [Concomitant]
     Active Substance: MOMETASONE
     Indication: PRODUCT USED FOR UNKNOWN INDICATION
     Dosage: FAT CREAM
     Route: 065
  22. L THYROXIN HENNING [Concomitant]
     Active Substance: LEVOTHYROXINE SODIUM
     Indication: PRODUCT USED FOR UNKNOWN INDICATION
     Dosage: 1 X 125, QD
     Route: 065
     Dates: start: 199003
  23. DIOVAN [Suspect]
     Active Substance: VALSARTAN
     Dosage: 80 MILLIGRAM, DAILY
     Route: 065
     Dates: start: 201302
  24. DIOVAN [Suspect]
     Active Substance: VALSARTAN
     Dosage: 1 DOSAGE FORM, DAILY
     Route: 065
     Dates: start: 20130215
  25. PREDNISOLONE. [Suspect]
     Active Substance: PREDNISOLONE
     Indication: PRODUCT USED FOR UNKNOWN INDICATION
     Dosage: UNK
     Route: 016
  26. BISOPROLOL COMP [Concomitant]
     Active Substance: BISOPROLOL FUMARATE\HYDROCHLOROTHIAZIDE
     Indication: PRODUCT USED FOR UNKNOWN INDICATION
     Dosage: ?X 10/25, 1X DAILY (MORNING)
     Route: 065
  27. MOMETASONE [Concomitant]
     Active Substance: MOMETASONE
     Indication: PRODUCT USED FOR UNKNOWN INDICATION
     Dosage: 1 MILLIGRAM PER GRAM
     Route: 065
  28. HYDROMORPHONE [Concomitant]
     Active Substance: HYDROMORPHONE
     Indication: PRODUCT USED FOR UNKNOWN INDICATION
     Dosage: UNK
     Route: 065
     Dates: start: 201902
  29. MIDAZOLAM. [Concomitant]
     Active Substance: MIDAZOLAM
     Indication: PRODUCT USED FOR UNKNOWN INDICATION
     Dosage: 5MG/1ML
     Route: 065
     Dates: start: 201903
  30. VALSARTAN HEXAL [Suspect]
     Active Substance: VALSARTAN
     Dosage: UNK
     Route: 065
     Dates: start: 2014
  31. DIOVAN [Suspect]
     Active Substance: VALSARTAN
     Indication: PRODUCT USED FOR UNKNOWN INDICATION
     Dosage: 80 MILLIGRAM, TWO TIMES A DAY
     Route: 065
     Dates: start: 201001
  32. DIOVAN [Suspect]
     Active Substance: VALSARTAN
     Dosage: 160 MILLIGRAM
     Route: 065
     Dates: start: 2013
  33. HALOPERIDOL NEURAXPHARM [Concomitant]
     Active Substance: HALOPERIDOL
     Indication: PRODUCT USED FOR UNKNOWN INDICATION
     Dosage: 30 MILLILITER
     Route: 065
     Dates: start: 201902
  34. BISOPROLOL RATIOPHARM [Concomitant]
     Active Substance: BISOPROLOL
     Indication: PRODUCT USED FOR UNKNOWN INDICATION
     Dosage: 5 MILLIGRAM
     Route: 048
     Dates: start: 20180524
  35. PARACETAMOL 1 A PHARMA [Concomitant]
     Active Substance: ACETAMINOPHEN
     Indication: PRODUCT USED FOR UNKNOWN INDICATION
     Dosage: 1000 MILLIGRAM
     Route: 065
     Dates: start: 201903
  36. L THYROXIN HENNING [Concomitant]
     Active Substance: LEVOTHYROXINE SODIUM
     Dosage: 125 UNK
     Route: 065
     Dates: start: 2016
  37. BISOPROLOL [Suspect]
     Active Substance: BISOPROLOL
     Indication: PRODUCT USED FOR UNKNOWN INDICATION
     Dosage: ? AN UNIT OF 10/25, QD, ONCE IN THE MORNING
     Route: 065
     Dates: start: 200903
  38. VALSARTAN FILM-COATED TABLET [Suspect]
     Active Substance: VALSARTAN
     Dosage: 160 MILLIGRAM, ONCE A DAY
     Route: 065
     Dates: start: 2012
  39. L-THYROX HEXAL [Suspect]
     Active Substance: LEVOTHYROXINE SODIUM
     Indication: PRODUCT USED FOR UNKNOWN INDICATION
     Dosage: 125 UNK
     Route: 065
     Dates: start: 2014
  40. BISOPROLOL PLUS 1 A PHARMA [Suspect]
     Active Substance: BISOPROLOL FUMARATE\HYDROCHLOROTHIAZIDE
     Indication: PRODUCT USED FOR UNKNOWN INDICATION
     Dosage: 10/25
     Route: 065
     Dates: start: 2014
  41. VALSARTAN 1A PHARMA [Suspect]
     Active Substance: VALSARTAN
     Dosage: 160 MILLIGRAM
     Route: 065
     Dates: start: 201312
  42. HCT HEXAL [Concomitant]
     Active Substance: HYDROCHLOROTHIAZIDE
     Indication: PRODUCT USED FOR UNKNOWN INDICATION
     Dosage: UNK, ONCE A DAY
     Route: 048
     Dates: start: 20180524
  43. VALSARTAN FILM-COATED TABLET [Suspect]
     Active Substance: VALSARTAN
     Dosage: UNK
     Route: 065
     Dates: start: 2017
  44. AMLODIPINE [Suspect]
     Active Substance: AMLODIPINE BESYLATE
     Indication: PRODUCT USED FOR UNKNOWN INDICATION
     Dosage: 5 MILLIGRAM
     Route: 065
     Dates: start: 2016
  45. VALSARTAN HEXAL [Suspect]
     Active Substance: VALSARTAN
     Dosage: ? A TABLET OF 320 MG, BID
     Route: 048
     Dates: start: 20180523
  46. DIOVAN [Suspect]
     Active Substance: VALSARTAN
     Dosage: 160 MILLIGRAM, DAILY MORNING
     Route: 065
     Dates: start: 201302
  47. DIOVAN [Suspect]
     Active Substance: VALSARTAN
     Dosage: 80 MILLIGRAM, DAILY
     Route: 065
     Dates: start: 20130215
  48. EUTHYROX [Concomitant]
     Active Substance: LEVOTHYROXINE SODIUM
     Indication: PRODUCT USED FOR UNKNOWN INDICATION
     Dosage: 1X 125, 1X DAILY (MORNING)
     Route: 065
  49. AMLODIPINE [Suspect]
     Active Substance: AMLODIPINE BESYLATE
     Dosage: 5 MILLIGRAM
     Route: 065
     Dates: start: 2013
  50. PANTOPRAZOL AL [Concomitant]
     Active Substance: PANTOPRAZOLE SODIUM
     Indication: PRODUCT USED FOR UNKNOWN INDICATION
     Dosage: 1X 40, 1X DAILY (MORNING)
     Route: 065
  51. FERRO-SANOL DUODENAL [Concomitant]
     Active Substance: FERROUS GLYCINE SULFATE
     Indication: PRODUCT USED FOR UNKNOWN INDICATION
     Dosage: 1 DOSAGE FORM, ONCE A DAY MORNING
     Route: 065

REACTIONS (93)
  - Osteoarthritis [Unknown]
  - Chronic kidney disease [Unknown]
  - Blood pressure increased [Unknown]
  - Adenoma benign [Unknown]
  - Haemorrhoids [Unknown]
  - Nephrogenic anaemia [Unknown]
  - Insomnia [Unknown]
  - Depression suicidal [Fatal]
  - Vasogenic cerebral oedema [Unknown]
  - Memory impairment [Recovering/Resolving]
  - Diabetes mellitus [Unknown]
  - Cognitive disorder [Recovering/Resolving]
  - Urinary retention [Unknown]
  - Swelling [Unknown]
  - Incorrect dose administered [Unknown]
  - Urinary tract infection [Recovered/Resolved]
  - Weight increased [Unknown]
  - Productive cough [Unknown]
  - Vomiting [Unknown]
  - Osteoporosis [Unknown]
  - Erysipelas [Recovering/Resolving]
  - Colitis [Unknown]
  - Cardiac failure [Unknown]
  - Fall [Unknown]
  - Dysuria [Recovered/Resolved]
  - Ventricular extrasystoles [Unknown]
  - Drug intolerance [Unknown]
  - Anal prolapse [Unknown]
  - Pruritus [Unknown]
  - Induration [Unknown]
  - Metastases to lung [Fatal]
  - Aphasia [Recovering/Resolving]
  - Confusional state [Unknown]
  - Basal cell carcinoma [Recovered/Resolved]
  - Large intestine polyp [Unknown]
  - Feeling hot [Unknown]
  - Joint swelling [Unknown]
  - Renal cyst [Unknown]
  - Melanocytic naevus [Unknown]
  - Nocturia [Unknown]
  - Inflammation [Unknown]
  - General physical health deterioration [Recovering/Resolving]
  - Renal neoplasm [Fatal]
  - Metastases to central nervous system [Unknown]
  - Joint swelling [Recovering/Resolving]
  - Gastroenteritis [Unknown]
  - Peripheral swelling [Unknown]
  - Rash [Unknown]
  - Anal incontinence [Not Recovered/Not Resolved]
  - Fibroma [Unknown]
  - Ventricular hypertrophy [Unknown]
  - Asthenia [Unknown]
  - Transient ischaemic attack [Unknown]
  - Bradycardia [Unknown]
  - Varicose vein [Unknown]
  - Erythema [Unknown]
  - Functional gastrointestinal disorder [Unknown]
  - Iron deficiency [Unknown]
  - Tinnitus [Unknown]
  - Weight decreased [Unknown]
  - Tendon rupture [Unknown]
  - Adenoma benign [Unknown]
  - Pleural effusion [Recovered/Resolved]
  - Defaecation disorder [Unknown]
  - Arrhythmia [Unknown]
  - Aphthous ulcer [Unknown]
  - Dermatosis [Unknown]
  - Ischaemia [Unknown]
  - Dizziness [Unknown]
  - Dyspnoea [Unknown]
  - Hypothyroidism [Unknown]
  - Drug hypersensitivity [Unknown]
  - Aortic dilatation [Unknown]
  - Supraventricular tachycardia [Unknown]
  - Anaemia [Unknown]
  - Urinary incontinence [Not Recovered/Not Resolved]
  - Renal cell carcinoma [Not Recovered/Not Resolved]
  - Arthralgia [Unknown]
  - Disturbance in attention [Unknown]
  - Gait disturbance [Unknown]
  - Abdominal pain [Unknown]
  - Diarrhoea [Unknown]
  - Visual impairment [Unknown]
  - Atrial fibrillation [Unknown]
  - Hypokalaemia [Unknown]
  - Cataract [Unknown]
  - Pain in extremity [Recovering/Resolving]
  - Abscess [Unknown]
  - Blood glucose abnormal [Unknown]
  - Fatigue [Unknown]
  - Meniscal degeneration [Unknown]
  - Cerumen impaction [Unknown]
  - Pustule [Unknown]

NARRATIVE: CASE EVENT DATE: 2007
